FAERS Safety Report 13226063 (Version 2)
Quarter: 2017Q1

REPORT INFORMATION
  Report Type: Spontaneous
  Country: LB (occurrence: LB)
  Receive Date: 20170213
  Receipt Date: 20170228
  Transmission Date: 20170428
  Serious: Yes (Other)
  Sender: FDA-Public Use
  Company Number: LB-009507513-1702LBN002587

PATIENT
  Age: 32 Year
  Sex: Male

DRUGS (2)
  1. KEYTRUDA [Suspect]
     Active Substance: PEMBROLIZUMAB
     Indication: HODGKIN^S DISEASE STAGE IV
     Dosage: UNK
     Dates: start: 20151222
  2. KEYTRUDA [Suspect]
     Active Substance: PEMBROLIZUMAB
     Dosage: 200 MG, UNK
     Dates: start: 201607

REACTIONS (6)
  - Pancreatitis [Unknown]
  - Immune system disorder [Unknown]
  - Hodgkin^s disease recurrent [Unknown]
  - Pain [Unknown]
  - Hepatitis fulminant [Unknown]
  - Pneumonitis [Unknown]

NARRATIVE: CASE EVENT DATE: 201607
